FAERS Safety Report 9156306 (Version 2)
Quarter: 2013Q2

REPORT INFORMATION
  Report Type: Spontaneous
  Country: US (occurrence: US)
  Receive Date: 20130312
  Receipt Date: 20130620
  Transmission Date: 20140414
  Serious: Yes (Other)
  Sender: FDA-Public Use
  Company Number: US-PAR PHARMACEUTICAL, INC-2013SCPR005785

PATIENT
  Sex: 0

DRUGS (1)
  1. CLOMIPHENE CITRATE [Suspect]
     Indication: BLOOD TESTOSTERONE DECREASED
     Dosage: 1 DF, EVERY ALTERNATE DAY
     Route: 048
     Dates: start: 20121101, end: 20121118

REACTIONS (4)
  - Glaucoma [Unknown]
  - Off label use [Unknown]
  - Scintillating scotoma [Not Recovered/Not Resolved]
  - Vitreous floaters [Not Recovered/Not Resolved]
